FAERS Safety Report 19366352 (Version 3)
Quarter: 2021Q3

REPORT INFORMATION
  Report Type: Report from Study
  Country: KR (occurrence: KR)
  Receive Date: 20210602
  Receipt Date: 20210730
  Transmission Date: 20211014
  Serious: Yes (Hospitalization, Other)
  Sender: FDA-Public Use
  Company Number: KR-JNJFOC-20210443177

PATIENT
  Age: 72 Year
  Sex: Female
  Weight: 47 kg

DRUGS (21)
  1. LAZERTINIB. [Suspect]
     Active Substance: LAZERTINIB
     Indication: NON-SMALL CELL LUNG CANCER
     Route: 048
     Dates: start: 20210415, end: 20210422
  2. IRRIBOW TAB 5MG [Concomitant]
     Indication: DIARRHOEA
     Route: 048
     Dates: start: 20210401, end: 20210413
  3. GLIME TAB [Concomitant]
     Indication: DIABETES MELLITUS
     Route: 048
     Dates: start: 2001, end: 20210515
  4. GINEXIN?F TAB [Concomitant]
     Indication: TINNITUS
     Route: 048
     Dates: start: 2019, end: 20210413
  5. GLITINLID CAP [Concomitant]
     Indication: TINNITUS
     Route: 048
     Dates: start: 2019, end: 20210413
  6. APETROL ES ORAL SUSP [Concomitant]
     Indication: DECREASED APPETITE
     Route: 048
     Dates: start: 20210421
  7. MOTILITONE TAB [Concomitant]
     Indication: GASTROINTESTINAL DISORDER THERAPY
     Route: 048
     Dates: start: 2019, end: 20210420
  8. ULTRACET ER SEMI TAB 325/37.5 [Concomitant]
     Indication: PLEURITIC PAIN
     Dosage: 325/37.5
     Route: 048
     Dates: start: 20210331
  9. NASAL CANNULA(O2) 2L [Concomitant]
     Indication: INFUSION RELATED REACTION
     Route: 050
     Dates: start: 20210415, end: 20210417
  10. ERBERT TAB [Concomitant]
     Indication: TINNITUS
     Route: 048
     Dates: start: 2019, end: 20210413
  11. MINOCIN CAP 50MG [Concomitant]
     Indication: PROPHYLAXIS
     Route: 048
     Dates: start: 20210415, end: 20210415
  12. TENELIA TAB [Concomitant]
     Indication: DIABETES MELLITUS
     Route: 048
     Dates: start: 2001
  13. TRITACE TAB [Concomitant]
     Indication: HYPERTENSION
     Route: 048
     Dates: start: 2010
  14. PARTIAL REBREATHING MASK(O2) 15L [Concomitant]
     Indication: INFUSION RELATED REACTION
     Route: 050
     Dates: start: 20210415, end: 20210415
  15. AMIVANTAMAB. [Suspect]
     Active Substance: AMIVANTAMAB
     Indication: NON-SMALL CELL LUNG CANCER
     Route: 042
     Dates: start: 20210415, end: 20210422
  16. YUHAN METFORMIN XR TAB [Concomitant]
     Indication: DIABETES MELLITUS
     Route: 048
     Dates: start: 2001, end: 20210514
  17. LITOR TAB((ATORVASTATIN CALCIUM TRIHYDRATE) [Concomitant]
     Indication: HYPERLIPIDAEMIA
     Route: 048
     Dates: start: 2016, end: 20210515
  18. PLETAAL SR CAP [Concomitant]
     Indication: HYPERLIPIDAEMIA
     Route: 048
     Dates: start: 20210415, end: 20210415
  19. PENIRAMIN [Concomitant]
     Indication: INFUSION RELATED REACTION
     Route: 042
     Dates: start: 20210415, end: 20210415
  20. CILOS XR CAP [Concomitant]
     Indication: HYPERLIPIDAEMIA
     Route: 048
     Dates: start: 2016, end: 20210408
  21. ESROBAN OINT 10G [Concomitant]
     Indication: INFUSION RELATED REACTION
     Route: 061
     Dates: start: 20210415, end: 20210415

REACTIONS (3)
  - Fatigue [Recovered/Resolved]
  - Deep vein thrombosis [Not Recovered/Not Resolved]
  - Pneumothorax [Recovered/Resolved]

NARRATIVE: CASE EVENT DATE: 20210421
